FAERS Safety Report 13280714 (Version 2)
Quarter: 2017Q2

REPORT INFORMATION
  Report Type: Report from Study
  Country: US (occurrence: US)
  Receive Date: 20170301
  Receipt Date: 20170413
  Transmission Date: 20170830
  Serious: Yes (Hospitalization, Other)
  Sender: FDA-Public Use
  Company Number: US-GILEAD-2017-0259572

PATIENT
  Age: 65 Year
  Sex: Male

DRUGS (2)
  1. AMBRISENTAN [Suspect]
     Active Substance: AMBRISENTAN
     Indication: NON-ALCOHOLIC STEATOHEPATITIS
  2. AMBRISENTAN [Suspect]
     Active Substance: AMBRISENTAN
     Indication: PULMONARY HYPERTENSION
     Dosage: 10 MG, UNK
     Route: 065
     Dates: start: 20160802

REACTIONS (8)
  - Mechanical ventilation [Unknown]
  - Hepatic encephalopathy [Unknown]
  - Urinary tract infection [Unknown]
  - Lymphoedema [Unknown]
  - Pulmonary hypertension [Unknown]
  - Thrombocytopenia [Unknown]
  - Non-alcoholic steatohepatitis [Unknown]
  - Mental status changes [Unknown]
